FAERS Safety Report 15730961 (Version 5)
Quarter: 2019Q2

REPORT INFORMATION
  Report Type: Report from Study
  Country: US (occurrence: US)
  Receive Date: 20181217
  Receipt Date: 20190506
  Transmission Date: 20190711
  Serious: Yes (Hospitalization, Other)
  Sender: FDA-Public Use
  Company Number: US-ACTELION-A-NJ2018-182784

PATIENT
  Sex: Female

DRUGS (3)
  1. OPSUMIT [Suspect]
     Active Substance: MACITENTAN
     Indication: COR PULMONALE CHRONIC
  2. REMODULIN [Concomitant]
     Active Substance: TREPROSTINIL
  3. OPSUMIT [Suspect]
     Active Substance: MACITENTAN
     Indication: PULMONARY ARTERIAL HYPERTENSION
     Dosage: 10 MG, QD
     Route: 048
     Dates: start: 20140331

REACTIONS (12)
  - Hand fracture [Unknown]
  - Pulmonary arterial hypertension [Unknown]
  - Anaemia [Unknown]
  - Dyspnoea [Unknown]
  - Platelet transfusion [Unknown]
  - Hepatic cirrhosis [Unknown]
  - Packed red blood cell transfusion [Unknown]
  - Condition aggravated [Unknown]
  - Feeling abnormal [Unknown]
  - Dyspnoea exertional [Unknown]
  - Pulmonary veno-occlusive disease [Unknown]
  - Ascites [Not Recovered/Not Resolved]
